FAERS Safety Report 6493557-0 (Version None)
Quarter: 2009Q4

REPORT INFORMATION
  Report Type: 
  Country: None (occurrence: None)
  Receive Date: 20091209
  Receipt Date: 20091127
  Transmission Date: 20100525
  Serious: Yes (Death, Hospitalization)
  Sender: FDA-Public Use
  Company Number: DSM-2009-01845

PATIENT
  Age: 84 Year
  Sex: Female

DRUGS (2)
  1. OLMETEC        (OLEMSARTAN MEDOXOML) [Suspect]
     Indication: HYPERTENSION
  2. PREVISCAN (FLUINDIONE) (FLUIDIONE) [Suspect]
     Indication: DRUG USE FOR UNKNOWN INDICATION
     Dosage: ORAL
     Route: 048

REACTIONS (5)
  - ATRIAL FIBRILLATION [None]
  - COMA SCALE ABNORMAL [None]
  - CREPITATIONS [None]
  - INTRAVENTRICULAR HAEMORRHAGE [None]
  - MALAISE [None]
